FAERS Safety Report 24534371 (Version 1)
Quarter: 2024Q4

REPORT INFORMATION
  Report Type: Spontaneous
  Country: US (occurrence: None)
  Receive Date: 20241021
  Receipt Date: 20241021
  Transmission Date: 20250114
  Serious: No
  Sender: Public
  Company Number: None

PATIENT
  Age: 81 Year
  Sex: Female
  Weight: 81.6 kg

DRUGS (10)
  1. VERZENIO [Suspect]
     Active Substance: ABEMACICLIB
     Indication: Breast cancer female
     Dosage: FREQUENCY : TWICE A DAY;?
     Route: 048
     Dates: start: 20240723, end: 20241014
  2. LETROZOLE [Concomitant]
     Active Substance: LETROZOLE
  3. aspirin 81mg ec [Concomitant]
  4. Calcium + D 1200mg [Concomitant]
  5. GAS-X [Concomitant]
     Active Substance: DIMETHICONE
  6. ALEVE [Concomitant]
     Active Substance: NAPROXEN SODIUM
  7. Breo Ellipta 100-25mcg [Concomitant]
  8. Mybetriq 25mg [Concomitant]
  9. SYNTHROID [Concomitant]
     Active Substance: LEVOTHYROXINE SODIUM
  10. Tylenol 650mg [Concomitant]

REACTIONS (1)
  - Dizziness [None]

NARRATIVE: CASE EVENT DATE: 20241014
